FAERS Safety Report 25212061 (Version 3)
Quarter: 2025Q2

REPORT INFORMATION
  Report Type: Report from Study
  Country: US (occurrence: US)
  Receive Date: 20250418
  Receipt Date: 20250501
  Transmission Date: 20250717
  Serious: No
  Sender: ABBVIE
  Company Number: US-ABBVIE-6234522

PATIENT
  Age: 64 Year
  Sex: Male
  Weight: 104.32 kg

DRUGS (5)
  1. VYALEV [Suspect]
     Active Substance: FOSCARBIDOPA\FOSLEVODOPA
     Indication: Parkinson^s disease
     Route: 058
     Dates: start: 20250115, end: 20250324
  2. CARBIDOPA\LEVODOPA [Concomitant]
     Active Substance: CARBIDOPA\LEVODOPA
     Indication: Parkinson^s disease
  3. ATORVASTATIN [Concomitant]
     Active Substance: ATORVASTATIN
     Indication: Blood cholesterol
  4. METOPROLOL [Concomitant]
     Active Substance: METOPROLOL
     Indication: Cardiac disorder
  5. ASPIRIN [Concomitant]
     Active Substance: ASPIRIN
     Indication: Anticoagulant therapy

REACTIONS (7)
  - Stress [Unknown]
  - Catheter site pain [Recovered/Resolved]
  - Pain [Unknown]
  - Catheter site pain [Recovered/Resolved]
  - Catheter site infection [Unknown]
  - Catheter site cellulitis [Recovered/Resolved]
  - Catheter site nodule [Recovering/Resolving]

NARRATIVE: CASE EVENT DATE: 20250101
